FAERS Safety Report 10022573 (Version 1)
Quarter: 2014Q1

REPORT INFORMATION
  Report Type: Spontaneous
  Country: US (occurrence: US)
  Receive Date: 20140319
  Receipt Date: 20140319
  Transmission Date: 20141002
  Serious: No
  Sender: FDA-Public Use
  Company Number: US-ASTRAZENECA-2014SE09278

PATIENT
  Age: 77 Year
  Sex: Male

DRUGS (5)
  1. TOPROL-XL [Suspect]
     Indication: ATRIAL FIBRILLATION
     Route: 048
     Dates: start: 2003
  2. TOPROL-XL [Suspect]
     Indication: ATRIAL FIBRILLATION
     Dosage: GENERIC
     Route: 048
     Dates: start: 2003
  3. TOPROL-XL [Suspect]
     Indication: ATRIAL FIBRILLATION
     Route: 048
  4. TOPROL-XL [Suspect]
     Indication: ATRIAL FIBRILLATION
     Route: 048
  5. NOT OFFERED [Concomitant]

REACTIONS (1)
  - Atrial fibrillation [Recovered/Resolved]
